FAERS Safety Report 5759843-4 (Version None)
Quarter: 2008Q2

REPORT INFORMATION
  Report Type: 
  Country: None (occurrence: None)
  Receive Date: 20080605
  Receipt Date: 20080527
  Transmission Date: 20081010
  Serious: Yes (Other)
  Sender: FDA-Public Use
  Company Number: PHBS2008US04657

PATIENT
  Age: 37 Year
  Sex: Male

DRUGS (2)
  1. CLOZAPINE [Suspect]
     Indication: SCHIZOPHRENIA
     Dosage: 400 MG/DAY
     Route: 065
  2. MODAFINIL [Interacting]
     Indication: FATIGUE
     Dosage: 100 MG/DAY

REACTIONS (6)
  - DRUG INTERACTION [None]
  - DRUG LEVEL DECREASED [None]
  - FATIGUE [None]
  - RASH [None]
  - SALIVARY HYPERSECRETION [None]
  - SLEEP APNOEA SYNDROME [None]
